FAERS Safety Report 4690318-X (Version None)
Quarter: 2005Q2

REPORT INFORMATION
  Report Type: 
  Country: None (occurrence: None)
  Receive Date: 20050615
  Receipt Date: 20050310
  Transmission Date: 20051028
  Serious: Yes (Hospitalization, Other)
  Sender: FDA-Public Use
  Company Number: US-MERCK-0503USA02090

PATIENT
  Age: 50 Year
  Sex: Female
  Weight: 116 kg

DRUGS (17)
  1. VIOXX [Suspect]
     Indication: ARTHRALGIA
     Route: 048
     Dates: start: 20000101, end: 20010101
  2. ZYPREXA [Concomitant]
     Route: 065
  3. LITHONATE [Concomitant]
     Route: 065
     Dates: start: 19990101, end: 20010101
  4. COGENTIN [Concomitant]
     Route: 065
  5. ACCUPRIL [Concomitant]
     Route: 065
  6. IBUPROFEN [Concomitant]
     Route: 065
  7. TYLENOL [Concomitant]
     Route: 065
  8. HALOPERIDOL DECANOATE [Concomitant]
     Route: 065
     Dates: start: 19990101, end: 20010101
  9. ISOSORBIDE MONONITRATE [Concomitant]
     Route: 065
     Dates: start: 20000101, end: 20010101
  10. ISOSORBIDE MONONITRATE [Concomitant]
     Route: 065
     Dates: start: 20000101, end: 20010101
  11. MEDROXYPROGESTERONE ACETATE [Concomitant]
     Route: 065
     Dates: start: 20000101, end: 20010101
  12. DEPAKOTE [Concomitant]
     Route: 065
  13. FERROUS SULFATE [Concomitant]
     Route: 065
  14. HYDROCHLOROTHIAZIDE [Concomitant]
     Route: 065
     Dates: start: 19990101
  15. AMANTADINE HYDROCHLORIDE [Concomitant]
     Route: 065
  16. ASPIRIN [Concomitant]
     Route: 065
     Dates: start: 20010101, end: 20050101
  17. ZOCOR [Concomitant]
     Route: 065
     Dates: start: 20000101

REACTIONS (14)
  - ANGINA UNSTABLE [None]
  - ASTHMA [None]
  - CARDIAC MURMUR [None]
  - CARDIOVASCULAR DISORDER [None]
  - DIABETES MELLITUS [None]
  - DYSPNOEA [None]
  - EMOTIONAL DISTRESS [None]
  - EXOPHTHALMOS [None]
  - GRAND MAL CONVULSION [None]
  - HYPERCHOLESTEROLAEMIA [None]
  - HYPERTENSION [None]
  - MITRAL VALVE INCOMPETENCE [None]
  - MYOCARDIAL INFARCTION [None]
  - OSTEOARTHRITIS [None]
